FAERS Safety Report 11201749 (Version 2)
Quarter: 2015Q3

REPORT INFORMATION
  Report Type: Spontaneous
  Country: US (occurrence: US)
  Receive Date: 20150619
  Receipt Date: 20150707
  Transmission Date: 20151125
  Serious: Yes (Life-Threatening, Hospitalization, Other)
  Sender: FDA-Public Use
  Company Number: US-MALLINCKRODT-T201502975

PATIENT
  Age: 61 Year
  Sex: Male

DRUGS (27)
  1. GABLOFEN [Suspect]
     Active Substance: BACLOFEN
     Dosage: 253.3 MCG/DAY
     Route: 037
     Dates: start: 20150604
  2. COLACE [Concomitant]
     Active Substance: DOCUSATE SODIUM
     Dosage: 100 MG, BID X 30 DAYS
     Route: 048
     Dates: start: 20130320
  3. DITROPAN [Concomitant]
     Active Substance: OXYBUTYNIN CHLORIDE
     Dosage: 5 MG, QD
     Route: 048
  4. MIRALAX [Concomitant]
     Active Substance: POLYETHYLENE GLYCOL 3350
     Dosage: 1 PACKET - 17 GM; MIXED WITH 8 OZ BEVERAGE ONCE DAILY
     Route: 048
     Dates: start: 20130320
  5. PHENAZOPYRIDINE. [Concomitant]
     Active Substance: PHENAZOPYRIDINE
     Indication: URINARY TRACT INFECTION
     Dosage: 200 MG; 1 TID PRN FOR S/S OF UTI
     Dates: start: 20130320
  6. CLONIDINE. [Concomitant]
     Active Substance: CLONIDINE
     Dosage: 0.1 MG, BID
     Route: 048
  7. LISINOPRIL. [Concomitant]
     Active Substance: LISINOPRIL
     Dosage: 20 MG, UNK
     Route: 048
  8. LORTAB [Concomitant]
     Active Substance: ACETAMINOPHEN\HYDROCODONE BITARTRATE
     Dosage: 5-500 MG, UNK
  9. BOTOX [Concomitant]
     Active Substance: ONABOTULINUMTOXINA
     Dosage: INJECTION UNITS PRESCRIBED BY PROVIDER
  10. BENADRYL [Concomitant]
     Active Substance: DIPHENHYDRAMINE HYDROCHLORIDE
     Dosage: 25 MG, UNK
  11. GABAPENTIN. [Concomitant]
     Active Substance: GABAPENTIN
     Dosage: 3 - 100 MG CAPS TID FOR 30 DAYS
     Route: 048
  12. HEP-LOCK [Concomitant]
     Active Substance: HEPARIN SODIUM
     Dosage: 5 CC MONTHLY IV
     Route: 042
     Dates: start: 20120914
  13. LANTUS [Concomitant]
     Active Substance: INSULIN GLARGINE
     Dosage: 100 UNIT/ML; PER INSULIN PROTOCOL
     Route: 058
  14. NYSTATIN. [Concomitant]
     Active Substance: NYSTATIN
     Indication: MOUTH ULCERATION
     Dosage: 50 MILLLION UNITS; 1 TSP/5ML QID DAILY AS NEEDED FOR MOUTH SORES
     Route: 048
     Dates: start: 20130320
  15. GABLOFEN [Suspect]
     Active Substance: BACLOFEN
     Indication: MUSCLE SPASTICITY
     Dosage: 422.7 MCG/DAY
     Route: 037
     Dates: start: 20150528
  16. GABLOFEN [Suspect]
     Active Substance: BACLOFEN
     Dosage: 202.5 MCG/DAY
  17. ALBUTEROL. [Concomitant]
     Active Substance: ALBUTEROL
     Dosage: 2.5 MG / 3 ML FOR NEBULIATION
  18. ATIVAN [Concomitant]
     Active Substance: LORAZEPAM
     Indication: ANXIETY
     Dosage: 2 MG/2 MGLIQUID, 0.75 ML 4 TIMES DAILY AS NEEDED FOR ANXIETY
     Route: 048
  19. BACTROBAN [Concomitant]
     Active Substance: MUPIROCIN\MUPIROCIN CALCIUM
     Dosage: 2 % TOPICALLY DAILY TO PERISTOMA SITE
     Dates: start: 20130225
  20. BACLOFEN. [Concomitant]
     Active Substance: BACLOFEN
     Indication: MUSCLE SPASTICITY
     Dosage: COMPOUNDED BACLOFEN 1000 MCG/ML, 422.7 MCG/DAY
     Route: 037
     Dates: start: 20140403, end: 20150505
  21. AMLODIPINE [Concomitant]
     Active Substance: AMLODIPINE BESYLATE
     Dosage: 5 MG, UNK
     Route: 048
  22. EFFEXOR [Concomitant]
     Active Substance: VENLAFAXINE HYDROCHLORIDE
     Dosage: 150 MG, QD
     Route: 048
  23. NORMAL SALINE [Concomitant]
     Active Substance: SODIUM CHLORIDE
     Dosage: 10 CC IV FLUSH BEFORE AND AFTER LAB DRAW; MONTHLY
     Dates: start: 20120914
  24. PLAVIX [Concomitant]
     Active Substance: CLOPIDOGREL BISULFATE
     Dosage: 75 MG, QD
     Route: 048
  25. MUCINEX DM [Concomitant]
     Active Substance: DEXTROMETHORPHAN HYDROBROMIDE\GUAIFENESIN
     Dosage: 1,200 MG, 1 TAB AS NEEDED
     Route: 048
     Dates: start: 20121025
  26. PROMETHAZINE [Concomitant]
     Active Substance: PROMETHAZINE\PROMETHAZINE HYDROCHLORIDE
     Dosage: 25 MG, UNK
     Route: 048
  27. REGLAN [Concomitant]
     Active Substance: METOCLOPRAMIDE HYDROCHLORIDE
     Dosage: 1- 5MG TAB BID
     Route: 048
     Dates: start: 20130329

REACTIONS (5)
  - Cerebrovascular accident [Unknown]
  - Haematemesis [Unknown]
  - Altered state of consciousness [Recovering/Resolving]
  - Device failure [Unknown]
  - Cardio-respiratory arrest [Recovering/Resolving]

NARRATIVE: CASE EVENT DATE: 20150529
